FAERS Safety Report 23943002 (Version 3)
Quarter: 2024Q3

REPORT INFORMATION
  Report Type: Spontaneous
  Country: US (occurrence: US)
  Receive Date: 20240605
  Receipt Date: 20240711
  Transmission Date: 20241016
  Serious: Yes (Hospitalization, Other)
  Sender: PFIZER
  Company Number: US-PFIZER INC-202400185981

PATIENT
  Age: 93 Year
  Sex: Female
  Weight: 65.76 kg

DRUGS (5)
  1. PAXLOVID [Suspect]
     Active Substance: NIRMATRELVIR\RITONAVIR
     Indication: COVID-19 treatment
     Dosage: UNK
     Route: 048
     Dates: start: 20240425, end: 20240430
  2. METOPROLOL [Concomitant]
     Active Substance: METOPROLOL
     Dosage: 25 MG, 2X/DAY
  3. VALACYCLOVIR [Concomitant]
     Active Substance: VALACYCLOVIR HYDROCHLORIDE
     Dosage: 500 MG, DAILY
  4. LEVOTHYROXINE [Concomitant]
     Active Substance: LEVOTHYROXINE\LEVOTHYROXINE SODIUM
     Dosage: 50 UG, DAILY
  5. LIPITOR [Concomitant]
     Active Substance: ATORVASTATIN CALCIUM
     Dosage: 20 MG, DAILY

REACTIONS (5)
  - Therapeutic product effect incomplete [Recovering/Resolving]
  - Pneumonia [Recovering/Resolving]
  - Sepsis [Not Recovered/Not Resolved]
  - Cardiac failure [Recovering/Resolving]
  - Post-acute COVID-19 syndrome [Recovering/Resolving]

NARRATIVE: CASE EVENT DATE: 20240501
